FAERS Safety Report 14378529 (Version 5)
Quarter: 2018Q2

REPORT INFORMATION
  Report Type: Report from Study
  Country: GB (occurrence: GB)
  Receive Date: 20180112
  Receipt Date: 20180430
  Transmission Date: 20180711
  Serious: Yes (Hospitalization)
  Sender: FDA-Public Use
  Company Number: GB-ROCHE-2050614

PATIENT
  Age: 30 Year
  Sex: Male

DRUGS (13)
  1. CYTARABINE. [Suspect]
     Active Substance: CYTARABINE
     Dosage: ON 22/AUG/2017, MOST RECENT DOSE PRIOR TO ONSET OF EVENT.
     Route: 037
     Dates: start: 20170822
  2. MERCAPTOPURINE. [Suspect]
     Active Substance: MERCAPTOPURINE
     Dosage: ON 22/AUG/2017, MOST RECENT DOSE PRIOR TO ONSET OF EVENT.
     Route: 037
     Dates: start: 20170822
  3. ONDANSETRON [Concomitant]
     Active Substance: ONDANSETRON
     Indication: PROPHYLAXIS
     Dosage: AS REQUIRED
     Route: 042
     Dates: start: 20170913
  4. KEPIVANCE [Suspect]
     Active Substance: PALIFERMIN
     Indication: ACUTE LYMPHOCYTIC LEUKAEMIA
     Route: 065
  5. ONCASPAR [Suspect]
     Active Substance: PEGASPARGASE
     Indication: ACUTE LYMPHOCYTIC LEUKAEMIA
     Dosage: ON 25/AUG/2017, MOST RECENT DOSE OF PEGASPARGASE PRIOR TO ONSET OF EVENT.
     Route: 042
     Dates: start: 20170821
  6. ETOPOSIDE. [Suspect]
     Active Substance: ETOPOSIDE
     Indication: ACUTE LYMPHOCYTIC LEUKAEMIA
     Dosage: ON 25/AUG/2017, MOST RECENT DOSE PRIOR TO ONSET OF EVENT.
     Route: 042
     Dates: start: 20170821
  7. DOMPERIDONE [Concomitant]
     Active Substance: DOMPERIDONE
     Indication: PROPHYLAXIS
     Route: 065
  8. CYTARABINE. [Suspect]
     Active Substance: CYTARABINE
     Indication: ACUTE LYMPHOCYTIC LEUKAEMIA
     Dosage: ON 25/AUG/2017, MOST RECENT DOSE PRIOR TO ONSET OF EVENT.
     Route: 042
     Dates: start: 20170821
  9. METHOTREXATE. [Suspect]
     Active Substance: METHOTREXATE
     Indication: ACUTE LYMPHOCYTIC LEUKAEMIA
     Dosage: ON 10/SEP/2017, MOST RECENT DOSE PRIOR TO ONSET OF EVENT.?6.4286 MILLIGRAM DAILY;?MOST RECENT DOSE:1
     Route: 048
     Dates: start: 20170814
  10. MERCAPTOPURINE. [Suspect]
     Active Substance: MERCAPTOPURINE
     Indication: ACUTE LYMPHOCYTIC LEUKAEMIA
     Dosage: ON 10/SEP/2017, MOST RECENT DOSE PRIOR TO ONSET OF EVENT.
     Route: 048
     Dates: start: 20170814
  11. METHOTREXATE. [Suspect]
     Active Substance: METHOTREXATE
     Dosage: ON 22/AUG/2017, MOST RECENT DOSE PRIOR TO ONSET OF EVENT.
     Route: 037
     Dates: start: 20170822
  12. RITUXIMAB. [Suspect]
     Active Substance: RITUXIMAB
     Indication: ACUTE LYMPHOCYTIC LEUKAEMIA
     Dosage: MOST RECENT DOSE: 01/JUN/2017
     Route: 042
     Dates: start: 20170511
  13. ATRIANCE [Suspect]
     Active Substance: NELARABINE
     Indication: ACUTE LYMPHOCYTIC LEUKAEMIA
     Route: 065

REACTIONS (3)
  - Pulmonary embolism [Recovered/Resolved with Sequelae]
  - Tachycardia [Unknown]
  - Dyspnoea [Unknown]

NARRATIVE: CASE EVENT DATE: 20170911
